FAERS Safety Report 6344500-6 (Version None)
Quarter: 2009Q3

REPORT INFORMATION
  Report Type: 
  Country: None (occurrence: None)
  Receive Date: 20090908
  Receipt Date: 20090825
  Transmission Date: 20100115
  Serious: Yes (Other)
  Sender: FDA-Public Use
  Company Number: FR-PFIZER INC-2009259692

PATIENT
  Age: 40 Year

DRUGS (2)
  1. CAMPTOSAR [Suspect]
     Indication: GLIOMA
     Dosage: 1 DF, UNK
     Dates: start: 20090825, end: 20090825
  2. AVASTIN [Suspect]
     Indication: GLIOMA
     Dosage: UNK
     Dates: start: 20090825

REACTIONS (2)
  - HYPOTHERMIA [None]
  - VOMITING [None]
